FAERS Safety Report 7434943-1 (Version None)
Quarter: 2011Q2

REPORT INFORMATION
  Report Type: 
  Country: None (occurrence: None)
  Receive Date: 20110425
  Receipt Date: 20110420
  Transmission Date: 20111010
  Serious: Yes (Hospitalization, Other)
  Sender: FDA-Public Use
  Company Number: CA-ABBOTT-11P-028-0720393-00

PATIENT
  Sex: Male
  Weight: 70.37 kg

DRUGS (9)
  1. CENTRUM SELECT 50+ [Concomitant]
     Indication: ROUTINE HEALTH MAINTENANCE
  2. CALCIUM CITRATE WITH VIT D [Concomitant]
     Indication: ROUTINE HEALTH MAINTENANCE
     Route: 048
  3. OMEPRAZOLE [Concomitant]
     Indication: GASTRIC DISORDER
     Route: 048
  4. ARTHROTEC [Concomitant]
     Indication: RHEUMATOID ARTHRITIS
     Dates: start: 20110301, end: 20110301
  5. METHOTREXATE [Concomitant]
     Indication: RHEUMATOID ARTHRITIS
     Route: 048
  6. HUMIRA [Suspect]
     Route: 058
  7. FOLIC ACID [Concomitant]
     Indication: VITAMIN SUPPLEMENTATION
  8. LOVAZA [Concomitant]
     Indication: ROUTINE HEALTH MAINTENANCE
     Route: 048
  9. HUMIRA [Suspect]
     Indication: RHEUMATOID ARTHRITIS
     Route: 058

REACTIONS (6)
  - RHEUMATOID ARTHRITIS [None]
  - POLLAKIURIA [None]
  - CONSTIPATION [None]
  - CHONDROPATHY [None]
  - ARTHRALGIA [None]
  - PROCEDURAL PAIN [None]
